FAERS Safety Report 10411794 (Version 1)
Quarter: 2014Q2

REPORT INFORMATION
  Report Type: Spontaneous
  Country: US (occurrence: None)
  Receive Date: 20140604
  Receipt Date: 20140604
  Transmission Date: 20141212
  Serious: No
  Sender: FDA-Public Use
  Company Number: 163-POMAL-14042576

PATIENT
  Age: 73 Year
  Sex: Female
  Weight: 69 kg

DRUGS (3)
  1. POMALYST (POMALIDOMIDE) (4 MILLIGRAM, CAPSULES) [Suspect]
     Indication: PLASMA CELL MYELOMA
     Route: 048
     Dates: start: 201309, end: 2013
  2. HYDROCODONE/APAP (VICODIN) [Concomitant]
  3. HYDROMORPHONE [Concomitant]

REACTIONS (2)
  - Unevaluable event [None]
  - Fatigue [None]
